FAERS Safety Report 8188904-8 (Version None)
Quarter: 2012Q1

REPORT INFORMATION
  Report Type: 
  Country: None (occurrence: None)
  Receive Date: 20120306
  Receipt Date: 20120228
  Transmission Date: 20120608
  Serious: Yes (Hospitalization)
  Sender: FDA-Public Use
  Company Number: FR-MERCK-1201USA02362

PATIENT
  Age: 61 Year
  Sex: Male

DRUGS (11)
  1. ISENTRESS [Suspect]
     Indication: HIV INFECTION
     Route: 048
     Dates: start: 20090427, end: 20111209
  2. SUSTIVA [Suspect]
     Indication: HIV INFECTION
     Route: 048
     Dates: start: 20090427
  3. REYATAZ [Suspect]
     Indication: HIV INFECTION
     Route: 048
     Dates: start: 20090427
  4. NORVIR [Suspect]
     Indication: HIV INFECTION
     Route: 048
     Dates: start: 20090427
  5. PRAVASTATIN [Concomitant]
     Route: 065
  6. PLAVIX [Concomitant]
     Route: 065
  7. ASPEGIC 1000 [Concomitant]
     Route: 065
  8. BACTRIM [Suspect]
     Route: 065
  9. ASPIRIN [Concomitant]
     Route: 065
  10. PERINDOPRIL ERBUMINE [Concomitant]
     Route: 065
  11. SECTRAL [Concomitant]
     Route: 065

REACTIONS (6)
  - CYTOLYTIC HEPATITIS [None]
  - EOSINOPHILIA [None]
  - GLOMERULONEPHRITIS MEMBRANOUS [None]
  - TUBULOINTERSTITIAL NEPHRITIS [None]
  - NEPHROTIC SYNDROME [None]
  - CHOLESTASIS [None]
